FAERS Safety Report 9461438 (Version 2)
Quarter: 2013Q4

REPORT INFORMATION
  Report Type: Spontaneous
  Country: US (occurrence: US)
  Receive Date: 20130816
  Receipt Date: 20131007
  Transmission Date: 20140711
  Serious: Yes (Other)
  Sender: FDA-Public Use
  Company Number: PHEH2013US017076

PATIENT
  Sex: Male

DRUGS (1)
  1. TOBI PODHALER [Suspect]
     Indication: CYSTIC FIBROSIS
     Dosage: 28 MG, 4X/DAY
     Dates: start: 20130806

REACTIONS (2)
  - Blood urine present [Not Recovered/Not Resolved]
  - Haemoptysis [Unknown]
